FAERS Safety Report 6084588-3 (Version None)
Quarter: 2009Q1

REPORT INFORMATION
  Report Type: 
  Country: None (occurrence: None)
  Receive Date: 20090219
  Receipt Date: 20090211
  Transmission Date: 20090719
  Serious: Yes (Other)
  Sender: FDA-Public Use
  Company Number: US-B.I. PHARMACEUTICALS,INC./RIDGEFIELD-2009-BP-00843BP

PATIENT
  Age: 8 Year
  Sex: Male
  Weight: 37 kg

DRUGS (1)
  1. CATAPRES-TTS-1 [Suspect]
     Dosage: .1MG
     Route: 061
     Dates: start: 20081201, end: 20090122

REACTIONS (2)
  - DERMATITIS CONTACT [None]
  - HYPERSENSITIVITY [None]
